FAERS Safety Report 26131358 (Version 1)
Quarter: 2025Q4

REPORT INFORMATION
  Report Type: Spontaneous
  Country: US (occurrence: US)
  Receive Date: 20251208
  Receipt Date: 20251208
  Transmission Date: 20260117
  Serious: No
  Sender: FOUNDATION CONSUMER HEALTHCARE, LLC
  Company Number: US-FOUNDATIONCONSUMERHC-2025-US-046713

PATIENT
  Age: 27 Year
  Sex: Female
  Weight: 68.04 kg

DRUGS (1)
  1. PLAN B ONE-STEP [Suspect]
     Active Substance: LEVONORGESTREL
     Indication: Post coital contraception
     Dosage: 1 X 1.5 MG DOSE
     Route: 048
     Dates: start: 20250930, end: 20250930

REACTIONS (2)
  - Menstruation delayed [Recovered/Resolved]
  - Abdominal pain upper [Recovered/Resolved]

NARRATIVE: CASE EVENT DATE: 20251011
